FAERS Safety Report 10245469 (Version 1)
Quarter: 2014Q2

REPORT INFORMATION
  Report Type: Report from Study
  Country: US (occurrence: US)
  Receive Date: 20140618
  Receipt Date: 20140618
  Transmission Date: 20141212
  Serious: Yes (Hospitalization)
  Sender: FDA-Public Use
  Company Number: US-MERCK-1406USA008143

PATIENT
  Age: 71 Year
  Sex: Male

DRUGS (27)
  1. VORINOSTAT [Suspect]
     Indication: ACUTE MYELOID LEUKAEMIA
     Dosage: 500 MG, TID
     Route: 048
     Dates: start: 20140530, end: 20140601
  2. VORINOSTAT [Suspect]
     Dosage: 300 MG, QD
     Route: 048
     Dates: start: 20140602, end: 20140608
  3. TEMOZOLOMIDE [Suspect]
     Indication: ACUTE MYELOID LEUKAEMIA
     Dosage: 200 MG, QD
     Route: 048
     Dates: start: 20140516, end: 20140529
  4. TEMOZOLOMIDE [Suspect]
     Dosage: 400 MG, QD
     Route: 048
     Dates: start: 20140602, end: 20140608
  5. BENADRYL [Concomitant]
     Dosage: 25 MG, ONCE, PRN
     Route: 048
  6. HYTRIN [Concomitant]
     Dosage: TAKE 1 CAP BY MOUTH DAILY IN THE EVENING, DISPENSE: 30 CAPSULES
     Route: 048
  7. COMPAZINE [Concomitant]
     Indication: NAUSEA
     Dosage: TAKE 1 CAP BY MOUTH EVERY 6 HOURS AS NEEDED, DISPENSE: 30 TABLETS
     Route: 048
  8. COMPAZINE [Concomitant]
     Indication: VOMITING
  9. VIBRAMYCIN (DOXYCYCLINE HYCLATE) [Concomitant]
     Dosage: 1 DF, BID, DISPENSE: 20 CAPSULES
     Route: 048
  10. ZOFRAN [Concomitant]
     Indication: NAUSEA
     Dosage: TAKE 1 TAB BY MOUTH EVERY 12 HOURS AS NEEDED, DISPENSE: 24 TABLETS
     Route: 048
  11. NOXAFIL [Concomitant]
     Dosage: TAKE 3 TABS BY MOUTH DAILY, DISPENSE: 90 TABLETS
     Route: 048
  12. ROXICODONE [Concomitant]
     Dosage: TAKE 1-2 TABS BY MOUTH EVERY 6 HOURS AS NEEDED, DISPENSE: 90 TABLETS
     Route: 048
  13. OXYCONTIN [Concomitant]
     Dosage: TAKE 1 TAB BY MOUTH EVERY 12 HOURS AS NEEDED, DISPENSE: 60 TABLETS
     Route: 048
  14. CARAFATE [Concomitant]
     Dosage: TAKE 1 TAB BY MOUTH 2 TIMES A DAY
     Route: 048
  15. K-DUR [Concomitant]
     Dosage: TAKE 1 TAB BY MOUTH DAILY, DISPENSE: 30 TABLETS
     Route: 048
  16. NORVASC [Concomitant]
     Dosage: TAKE 1 TAB BY MOUTH DAILY, DISPENSE: 30 TABLETS
     Route: 048
  17. COLACE [Concomitant]
     Dosage: TAKE 1 CAP BY MOUTH 2 TIMES A DAY, DISPENSE: 60 CAPSULES
     Route: 048
  18. LASIX (FUROSEMIDE) [Concomitant]
     Dosage: TAKE 1 TAB BY MOUTH DAILY
     Route: 048
  19. PROSCAR [Concomitant]
     Dosage: TAKE 5 MG BY MOUTH DAILY
     Route: 048
  20. PRINIVIL [Concomitant]
     Dosage: TAKE 1 TAB BY MOUTH DAILY, DISPENSE: 30 TABLETS
     Route: 048
  21. COREG [Concomitant]
     Dosage: TAKE 1 TAB BY MOUTH 2 TIMES A DAY WITH MEALS, DISPENSE: 60 TABLETS
     Route: 048
  22. LANOXIN [Concomitant]
     Dosage: TAKE 1 TAB BY MOUTH DAILY, DISPENSE: 30 TABLETS
     Route: 048
  23. ZOVIRAX [Concomitant]
     Dosage: TAKE 1 TAB BY MOUTH 2 TIMES A DAY, DISPENSE: 60 TABLETS
     Route: 048
  24. PROVENTIL [Concomitant]
     Indication: BRONCHOSPASM
     Dosage: 2 PUFFS BY INHALATION ROUTE EVERY 4 HOURS AS NEEDED, DISPENSE: 8.5 G
     Route: 055
  25. PROVENTIL [Concomitant]
     Indication: WHEEZING
  26. PROTONIX [Concomitant]
     Dosage: TAKE 1 TAB BY MOUTH DAILY, DISPENSE: 30 TABLETS
     Route: 048
  27. ZESTRIL [Concomitant]
     Dosage: TAKE 1 TAB BY MOUTH DAILY, DISPENSE: 30 TABLETS
     Route: 048

REACTIONS (1)
  - Febrile neutropenia [Not Recovered/Not Resolved]
